FAERS Safety Report 23252327 (Version 1)
Quarter: 2023Q4

REPORT INFORMATION
  Report Type: Spontaneous
  Country: CN (occurrence: CN)
  Receive Date: 20231201
  Receipt Date: 20231201
  Transmission Date: 20240110
  Serious: Yes (Disabling, Other)
  Sender: FDA-Public Use
  Company Number: CN-009507513-2311CHN009952

PATIENT
  Age: 68 Year
  Sex: Male

DRUGS (1)
  1. CILASTATIN SODIUM\IMIPENEM [Suspect]
     Active Substance: CILASTATIN SODIUM\IMIPENEM
     Indication: Infection
     Dosage: 1 G, Q8H
     Route: 041
     Dates: start: 20231114, end: 20231118

REACTIONS (6)
  - Nephropathy toxic [Not Recovered/Not Resolved]
  - Hydronephrosis [Unknown]
  - Anuria [Unknown]
  - Gastric cancer [Unknown]
  - Ultrasound kidney abnormal [Unknown]
  - Glomerular filtration rate abnormal [Unknown]

NARRATIVE: CASE EVENT DATE: 20231118
